FAERS Safety Report 11046103 (Version 2)
Quarter: 2015Q2

REPORT INFORMATION
  Report Type: Spontaneous
  Country: US (occurrence: US)
  Receive Date: 20150418
  Receipt Date: 20150524
  Transmission Date: 20150821
  Serious: No
  Sender: FDA-Public Use
  Company Number: US-JNJFOC-20141205807

PATIENT
  Age: 43 Year
  Sex: Male
  Weight: 90.72 kg

DRUGS (2)
  1. NIZORAL A-D [Suspect]
     Active Substance: KETOCONAZOLE
     Indication: SKIN EXFOLIATION
     Dosage: DIME SIZED AMOUNT
     Route: 061
     Dates: start: 20141126, end: 20141204
  2. NIZORAL A-D [Suspect]
     Active Substance: KETOCONAZOLE
     Indication: PRURITUS
     Dosage: DIME SIZED AMOUNT
     Route: 061
     Dates: start: 20141126, end: 20141204

REACTIONS (1)
  - Drug ineffective [Unknown]
